FAERS Safety Report 9452630 (Version 1)
Quarter: 2013Q3

REPORT INFORMATION
  Report Type: Spontaneous
  Country: US (occurrence: US)
  Receive Date: 20130812
  Receipt Date: 20130812
  Transmission Date: 20140515
  Serious: No
  Sender: FDA-Public Use
  Company Number: US-PFIZER INC-2013231916

PATIENT
  Age: 67 Year
  Sex: Female
  Weight: 52.15 kg

DRUGS (4)
  1. LYRICA [Suspect]
     Indication: NEUROPATHY PERIPHERAL
     Dosage: 150 MG, 2X/DAY
     Route: 048
  2. LYRICA [Suspect]
     Dosage: 75 MG, 2X/DAY
     Route: 048
     Dates: end: 20130701
  3. LOSARTAN [Concomitant]
     Indication: CARDIAC DISORDER
     Dosage: UNK
  4. DEXILANT [Concomitant]
     Dosage: UNK

REACTIONS (2)
  - Diarrhoea [Unknown]
  - Drug ineffective [Unknown]
